FAERS Safety Report 5020461-7 (Version None)
Quarter: 2006Q2

REPORT INFORMATION
  Report Type: 
  Country: None (occurrence: None)
  Receive Date: 20060607
  Receipt Date: 20060530
  Transmission Date: 20061013
  Serious: Yes (Other)
  Sender: FDA-Public Use
  Company Number: US-SANOFI-SYNTHELABO-A03200603409

PATIENT
  Age: 45 Year
  Sex: Female

DRUGS (3)
  1. OXALIPLATIN [Suspect]
     Indication: COLON CANCER
     Route: 042
  2. LEUCOVORIN [Concomitant]
     Route: 042
  3. FLUOROURACIL [Concomitant]
     Route: 042

REACTIONS (3)
  - EYE HAEMORRHAGE [None]
  - OPTIC NEURITIS [None]
  - VISUAL DISTURBANCE [None]
